FAERS Safety Report 20314856 (Version 1)
Quarter: 2022Q1

REPORT INFORMATION
  Report Type: Other
  Country: US (occurrence: None)
  Receive Date: 20220110
  Receipt Date: 20220110
  Transmission Date: 20220423
  Serious: No
  Sender: FDA-Public Use
  Company Number: US-ROCHE-2931208

PATIENT
  Age: 25 Year
  Sex: Female

DRUGS (5)
  1. RITUXIMAB [Suspect]
     Active Substance: RITUXIMAB
     Indication: Thrombotic thrombocytopenic purpura
     Route: 041
  2. METHYLPREDNISOLONE [Suspect]
     Active Substance: METHYLPREDNISOLONE
     Indication: Thrombotic thrombocytopenic purpura
     Dosage: 10 MG/KG/DAY FOR 3 DAYS FOLLOWED BY 1 MG/KG/DAY
     Route: 065
  3. METHYLPREDNISOLONE [Suspect]
     Active Substance: METHYLPREDNISOLONE
     Dosage: 10 MG/KG/DAY FOR 3 DAYS FOLLOWED BY 1 MG/KG/DAY
     Route: 065
  4. CAPLACIZUMAB [Suspect]
     Active Substance: CAPLACIZUMAB
     Indication: Thrombotic thrombocytopenic purpura
     Dosage: 11 MG INTRAVENOUSLY PRIOR TO PE ON DAY 1 FOLLOWED BY 11 MG SUBCUTANEOUSLY AFTER PE AND CONTINUED DAI
     Route: 042
  5. CAPLACIZUMAB [Suspect]
     Active Substance: CAPLACIZUMAB
     Dosage: 11 MG INTRAVENOUSLY PRIOR TO PE ON DAY 1 FOLLOWED BY 11 MG SUBCUTANEOUSLY AFTER PE AND CONTINUED DAI
     Route: 058

REACTIONS (1)
  - COVID-19 [Unknown]
